FAERS Safety Report 8341763-2 (Version None)
Quarter: 2012Q2

REPORT INFORMATION
  Report Type: 
  Country: None (occurrence: None)
  Receive Date: 20120507
  Receipt Date: 20120423
  Transmission Date: 20120825
  Serious: Yes (Other)
  Sender: FDA-Public Use
  Company Number: GR-ELI_LILLY_AND_COMPANY-GR201204007867

PATIENT
  Age: 33 Year
  Sex: Male

DRUGS (5)
  1. SEROQUEL XR [Concomitant]
     Indication: PSYCHOTIC DISORDER
     Dosage: 300 MG, BID
     Route: 048
     Dates: start: 20120301
  2. ZOLOFT [Concomitant]
     Indication: PSYCHOTIC DISORDER
     Dosage: 150 MG, QD
     Route: 048
     Dates: start: 20110101
  3. ZYPREXA [Suspect]
     Indication: PSYCHOTIC DISORDER
     Dosage: 20 MG, QD
     Route: 048
     Dates: start: 20120301, end: 20120401
  4. INDERAL [Concomitant]
     Indication: PSYCHOTIC DISORDER
     Dosage: 40 MG, UNK
     Route: 048
     Dates: start: 20120301
  5. ANAFRANIL [Concomitant]
     Indication: PSYCHOTIC DISORDER
     Dosage: 75 MG, QD
     Route: 048
     Dates: start: 20120301

REACTIONS (4)
  - CONFUSIONAL STATE [None]
  - FALL [None]
  - HYPERHIDROSIS [None]
  - LOSS OF CONSCIOUSNESS [None]
